FAERS Safety Report 7164922-3 (Version None)
Quarter: 2010Q4

REPORT INFORMATION
  Report Type: 
  Country: None (occurrence: None)
  Receive Date: 20101215
  Receipt Date: 20091214
  Transmission Date: 20110411
  Serious: No
  Sender: FDA-Public Use
  Company Number: US-AMGEN-KDL380453

PATIENT

DRUGS (3)
  1. ENBREL [Suspect]
     Indication: PSORIASIS
     Dosage: 50 MG, QWK
     Route: 058
     Dates: start: 20080520
  2. ENBREL [Suspect]
     Indication: ARTHRITIS
  3. METHOTREXATE [Concomitant]
     Dosage: 15 MG, QWK
     Route: 048

REACTIONS (7)
  - BLOOD TEST ABNORMAL [None]
  - CHILLS [None]
  - COUGH [None]
  - FATIGUE [None]
  - HEADACHE [None]
  - MYALGIA [None]
  - WEIGHT DECREASED [None]
